FAERS Safety Report 5852373-0 (Version None)
Quarter: 2008Q3

REPORT INFORMATION
  Report Type: 
  Country: None (occurrence: None)
  Receive Date: 20080821
  Receipt Date: 20080819
  Transmission Date: 20090109
  Serious: Yes (Other)
  Sender: FDA-Public Use
  Company Number: LU-BRISTOL-MYERS SQUIBB COMPANY-14245831

PATIENT
  Age: 59 Year
  Sex: Female

DRUGS (4)
  1. SPRYCEL [Suspect]
     Indication: CHRONIC MYELOID LEUKAEMIA
     Route: 048
     Dates: start: 20070101
  2. IMURAN [Suspect]
  3. NEDIOS [Suspect]
     Dosage: 1 DF = 16 UNIT NOT SPECIFIED
  4. SUPRAX [Concomitant]

REACTIONS (1)
  - COLORECTAL CANCER [None]
